FAERS Safety Report 21904732 (Version 1)
Quarter: 2023Q1

REPORT INFORMATION
  Report Type: Spontaneous
  Country: US (occurrence: US)
  Receive Date: 20230124
  Receipt Date: 20230124
  Transmission Date: 20230418
  Serious: Yes (Other)
  Sender: FDA-Public Use
  Company Number: US-BAYER-2023A008986

PATIENT
  Age: 61 Year
  Sex: Male

DRUGS (3)
  1. ASPIRIN [Suspect]
     Active Substance: ASPIRIN
  2. PRAVASTATIN [Concomitant]
     Active Substance: PRAVASTATIN
  3. LISINOPRIL [Concomitant]
     Active Substance: LISINOPRIL

REACTIONS (2)
  - Haemorrhage subcutaneous [None]
  - Post-traumatic punctate intraepidermal haemorrhage [None]
